FAERS Safety Report 4373763-1 (Version None)
Quarter: 2004Q2

REPORT INFORMATION
  Report Type: 
  Country: None (occurrence: None)
  Receive Date: 20040603
  Receipt Date: 20040524
  Transmission Date: 20050107
  Serious: Yes (Other)
  Sender: FDA-Public Use
  Company Number: PERI00204001506

PATIENT
  Age: 47 Year
  Sex: Female

DRUGS (5)
  1. COVERSYL (PERINDOPRIL) [Suspect]
     Indication: HYPERTENSION
     Dosage: 4 MG QD PO
     Route: 048
     Dates: start: 20040421, end: 20040423
  2. PROCAPTAN (PERINDOPRIL ERBUMINE) [Suspect]
     Dosage: 2 MG DAILY PO
     Route: 048
     Dates: start: 20040502, end: 20040505
  3. HUMAN ACTARPID (INSULIN HUMAN) [Concomitant]
  4. HUMAN INSULATARD (INSULIN HUMAN INJECTION, ISOPHANE) [Concomitant]
  5. HUMAN MIXTARD (HUMAN MIXTARD) [Concomitant]

REACTIONS (1)
  - HYPOGLYCAEMIA [None]
